FAERS Safety Report 23153563 (Version 4)
Quarter: 2024Q1

REPORT INFORMATION
  Report Type: Report from Study
  Country: US (occurrence: US)
  Receive Date: 20231107
  Receipt Date: 20240228
  Transmission Date: 20240410
  Serious: Yes (Other)
  Sender: FDA-Public Use
  Company Number: US-002147023-NVSC2023US234989

PATIENT
  Sex: Female

DRUGS (1)
  1. KISQALI [Suspect]
     Active Substance: RIBOCICLIB
     Indication: Breast cancer
     Dosage: 600 MG, QD
     Route: 048

REACTIONS (19)
  - Neuropathy peripheral [Unknown]
  - Rash [Unknown]
  - Insomnia [Unknown]
  - Cough [Unknown]
  - Liver disorder [Unknown]
  - Nausea [Unknown]
  - Decreased appetite [Unknown]
  - Headache [Unknown]
  - Fatigue [Unknown]
  - White blood cell count decreased [Unknown]
  - Diarrhoea [Unknown]
  - Constipation [Unknown]
  - Yellow skin [Unknown]
  - Rash pruritic [Unknown]
  - Disturbance in attention [Unknown]
  - Alopecia [Unknown]
  - Depression [Unknown]
  - Madarosis [Unknown]
  - Asthenia [Unknown]
